FAERS Safety Report 10462347 (Version 2)
Quarter: 2014Q3

REPORT INFORMATION
  Report Type: Spontaneous
  Country: JP (occurrence: JP)
  Receive Date: 20140918
  Receipt Date: 20140926
  Transmission Date: 20150326
  Serious: Yes (Life-Threatening)
  Sender: FDA-Public Use
  Company Number: JP-PFIZER INC-2014257467

PATIENT
  Age: 82 Year
  Sex: Female

DRUGS (3)
  1. NICORANDIL [Concomitant]
     Active Substance: NICORANDIL
     Dosage: UNK
     Route: 048
     Dates: start: 20140909
  2. ZOSYN [Suspect]
     Active Substance: PIPERACILLIN SODIUM\TAZOBACTAM SODIUM
     Indication: PNEUMONIA
     Dosage: 4.5 G, 2X/DAY
     Route: 042
     Dates: start: 20140906, end: 20140911
  3. NICORANDIL [Concomitant]
     Active Substance: NICORANDIL
     Dosage: 96 MG, DAILY
     Route: 041
     Dates: start: 20140906, end: 20140908

REACTIONS (1)
  - Liver disorder [Recovering/Resolving]

NARRATIVE: CASE EVENT DATE: 20140911
